FAERS Safety Report 11212481 (Version 1)
Quarter: 2015Q2

REPORT INFORMATION
  Report Type: Spontaneous
  Country: US (occurrence: None)
  Receive Date: 20150622
  Receipt Date: 20150622
  Transmission Date: 20150821
  Serious: No
  Sender: FDA-Public Use
  Company Number: None

PATIENT
  Age: 61 Year
  Sex: Female
  Weight: 73.94 kg

DRUGS (5)
  1. ATENOLO [Concomitant]
  2. FLEXERIL [Concomitant]
     Active Substance: CYCLOBENZAPRINE HYDROCHLORIDE
  3. OCTUCURE [Concomitant]
  4. JUBLIA [Suspect]
     Active Substance: EFINACONAZOLE
     Indication: ONYCHOMYCOSIS
     Dates: start: 20150504, end: 20150615
  5. MOBIC [Concomitant]
     Active Substance: MELOXICAM

REACTIONS (3)
  - Pain [None]
  - Blister [None]
  - Swelling [None]

NARRATIVE: CASE EVENT DATE: 20150614
